FAERS Safety Report 23503750 (Version 1)
Quarter: 2024Q1

REPORT INFORMATION
  Report Type: Spontaneous
  Country: US (occurrence: None)
  Receive Date: 20240208
  Receipt Date: 20240208
  Transmission Date: 20240409
  Serious: No
  Sender: FDA-Public Use
  Company Number: None

PATIENT
  Age: 42 Year
  Sex: Female

DRUGS (1)
  1. COSENTYX [Suspect]
     Active Substance: SECUKINUMAB
     Indication: Psoriasis
     Dosage: OTHER FREQUENCY : WK FOR 5 WKS;?
     Route: 058
     Dates: start: 202312

REACTIONS (4)
  - Back pain [None]
  - Nausea [None]
  - Vomiting [None]
  - Diarrhoea [None]
